FAERS Safety Report 9464322 (Version 1)
Quarter: 2013Q3

REPORT INFORMATION
  Report Type: Report from Study
  Country: BR (occurrence: BR)
  Receive Date: 20130819
  Receipt Date: 20130819
  Transmission Date: 20140515
  Serious: Yes (Other)
  Sender: FDA-Public Use
  Company Number: PHHY2013BR089234

PATIENT
  Sex: Female
  Weight: 62 kg

DRUGS (6)
  1. EXELON PATCH [Suspect]
     Indication: DEMENTIA ALZHEIMER^S TYPE
     Dosage: 4.6 MG DAILY
     Route: 062
  2. SERTRALINE [Concomitant]
     Dosage: UNK UKN, UNK
     Dates: start: 201208
  3. QUETIAPINE [Concomitant]
     Dosage: UNK UKN, UNK
     Dates: start: 201208
  4. METFORMIN [Concomitant]
     Indication: DIABETES MELLITUS
     Dosage: UNK UKN, UNK
  5. GLICLAZIDE [Concomitant]
     Indication: DIABETES MELLITUS
     Dosage: UNK UKN, UNK
  6. ENALAPRIL [Concomitant]
     Indication: HYPERTENSION
     Dosage: UNK UKN, UNK

REACTIONS (9)
  - Cerebral atrophy [Unknown]
  - Aphasia [Unknown]
  - Metabolic disorder [Unknown]
  - Decreased appetite [Unknown]
  - Eating disorder [Unknown]
  - Hypertension [Unknown]
  - Weight decreased [Unknown]
  - Abnormal behaviour [Unknown]
  - Stress [Unknown]
